FAERS Safety Report 6102364-X (Version None)
Quarter: 2009Q1

REPORT INFORMATION
  Report Type: 
  Country: None (occurrence: None)
  Receive Date: 20090304
  Receipt Date: 20081008
  Transmission Date: 20090719
  Serious: No
  Sender: FDA-Public Use
  Company Number: US-ABBOTT-08P-163-0480558-00

PATIENT
  Age: 36 Year
  Sex: Female

DRUGS (4)
  1. VALPROIC ACID [Suspect]
     Indication: EPILEPSY
     Dates: end: 19970326
  2. PHENYTOIN [Suspect]
     Indication: DRUG USE FOR UNKNOWN INDICATION
     Dosage: 300 TO 450
  3. PHENYTOIN [Suspect]
  4. PHENYTOIN [Suspect]
     Dosage: 500 TO 600

REACTIONS (2)
  - CONVULSION [None]
  - PARTIAL SEIZURES [None]
